FAERS Safety Report 23360104 (Version 2)
Quarter: 2024Q1

REPORT INFORMATION
  Report Type: Spontaneous
  Country: JP (occurrence: JP)
  Receive Date: 20240103
  Receipt Date: 20240229
  Transmission Date: 20240409
  Serious: Yes (Death, Hospitalization, Other)
  Sender: FDA-Public Use
  Company Number: JP-UNITED THERAPEUTICS-UNT-2023-019289

PATIENT
  Sex: Male
  Weight: 60.7 kg

DRUGS (11)
  1. TYVASO [Suspect]
     Active Substance: TREPROSTINIL
     Indication: Pulmonary arterial hypertension
     Dosage: UNK, TID
     Dates: start: 20230630, end: 20230630
  2. TYVASO [Suspect]
     Active Substance: TREPROSTINIL
     Dosage: UNK (ONLY ONCE)
     Dates: start: 20230701, end: 20230701
  3. TYVASO [Suspect]
     Active Substance: TREPROSTINIL
     Dosage: UNK
     Dates: start: 20230703, end: 20231228
  4. TYVASO [Suspect]
     Active Substance: TREPROSTINIL
     Dosage: UNK
     Dates: start: 20230613
  5. AZOSEMIDE [Concomitant]
     Active Substance: AZOSEMIDE
     Indication: Cardiac failure chronic
     Dosage: 30 MG, QD
     Route: 065
     Dates: start: 20230906, end: 20231228
  6. DAPAGLIFLOZIN [Concomitant]
     Active Substance: DAPAGLIFLOZIN
     Indication: Cardiac failure chronic
     Dosage: 10 MG, QD
     Route: 065
     Dates: start: 20230415, end: 20231228
  7. FAMOTIDINE [Concomitant]
     Active Substance: FAMOTIDINE
     Indication: Combined pulmonary fibrosis and emphysema
     Dosage: 20 MG, QD
     Route: 065
     Dates: end: 20231228
  8. PRANLUKAST [Concomitant]
     Active Substance: PRANLUKAST
     Indication: Combined pulmonary fibrosis and emphysema
     Dosage: 450 MG, QD
     Route: 065
     Dates: end: 20231228
  9. THEO-DUR [Concomitant]
     Active Substance: THEOPHYLLINE ANHYDROUS
     Indication: Combined pulmonary fibrosis and emphysema
     Dosage: 400 MG, QD
     Route: 065
     Dates: end: 20231228
  10. REBAMIPIDE [Concomitant]
     Active Substance: REBAMIPIDE
     Indication: Combined pulmonary fibrosis and emphysema
     Dosage: 100 MG, QD
     Route: 065
     Dates: end: 20231228
  11. PREDONINE [Concomitant]
     Active Substance: PREDNISOLONE
     Indication: Combined pulmonary fibrosis and emphysema
     Dosage: 5 MG, QD
     Route: 065
     Dates: end: 20231228

REACTIONS (5)
  - Combined pulmonary fibrosis and emphysema [Fatal]
  - Cardio-respiratory arrest [Fatal]
  - Condition aggravated [Fatal]
  - Cardiac failure [Recovering/Resolving]
  - Dyspnoea [Recovered/Resolved]

NARRATIVE: CASE EVENT DATE: 20230101
